FAERS Safety Report 19665634 (Version 1)
Quarter: 2021Q3

REPORT INFORMATION
  Report Type: Report from Study
  Country: US (occurrence: US)
  Receive Date: 20210806
  Receipt Date: 20210806
  Transmission Date: 20211014
  Serious: Yes (Death, Hospitalization, Other)
  Sender: FDA-Public Use
  Company Number: US-INSMED, INC.-2021-08802-US

PATIENT
  Age: 40 Year
  Sex: Male

DRUGS (1)
  1. ARIKAYCE [Suspect]
     Active Substance: AMIKACIN
     Indication: MYCOBACTERIUM AVIUM COMPLEX INFECTION
     Dosage: 590 MILLIGRAM, QD
     Route: 055
     Dates: start: 20210607, end: 20210613

REACTIONS (7)
  - Dyspnoea [Unknown]
  - PCO2 increased [Not Recovered/Not Resolved]
  - Haemoptysis [Unknown]
  - Oxygen saturation decreased [Not Recovered/Not Resolved]
  - Death [Fatal]
  - Confusional state [Not Recovered/Not Resolved]
  - Therapy interrupted [Unknown]

NARRATIVE: CASE EVENT DATE: 2021
